FAERS Safety Report 8394931-8 (Version None)
Quarter: 2012Q2

REPORT INFORMATION
  Report Type: 
  Country: None (occurrence: None)
  Receive Date: 20120530
  Receipt Date: 20110902
  Transmission Date: 20120825
  Serious: No
  Sender: FDA-Public Use
  Company Number: US-GLAXOSMITHKLINE-A0943910A

PATIENT
  Age: 25 Year
  Sex: Female
  Weight: 64 kg

DRUGS (1)
  1. FLOLAN [Suspect]
     Indication: PULMONARY ARTERIAL HYPERTENSION
     Dosage: 73NGKM UNKNOWN
     Route: 042

REACTIONS (2)
  - DIZZINESS [None]
  - PALPITATIONS [None]
